FAERS Safety Report 7157117-0 (Version None)
Quarter: 2010Q4

REPORT INFORMATION
  Report Type: 
  Country: None (occurrence: None)
  Receive Date: 20101201
  Receipt Date: 20101117
  Transmission Date: 20110411
  Serious: Yes (Other)
  Sender: FDA-Public Use
  Company Number: 2010EU006136

PATIENT
  Sex: Female

DRUGS (1)
  1. VESICARE [Suspect]

REACTIONS (22)
  - ABDOMINAL DISTENSION [None]
  - ABDOMINAL PAIN [None]
  - ARRHYTHMIA [None]
  - ASTHENIA [None]
  - DIARRHOEA [None]
  - DRY EYE [None]
  - DRY MOUTH [None]
  - DRY THROAT [None]
  - DYSGEUSIA [None]
  - DYSURIA [None]
  - EYE PAIN [None]
  - FATIGUE [None]
  - FEAR [None]
  - FEELING COLD [None]
  - GASTROOESOPHAGEAL REFLUX DISEASE [None]
  - MALAISE [None]
  - MICTURITION URGENCY [None]
  - PRURITUS [None]
  - PYREXIA [None]
  - SCOTOMA [None]
  - VAGINAL DISCHARGE [None]
  - VOMITING [None]
